FAERS Safety Report 21897803 (Version 1)
Quarter: 2023Q1

REPORT INFORMATION
  Report Type: Spontaneous
  Country: US (occurrence: US)
  Receive Date: 20230123
  Receipt Date: 20230123
  Transmission Date: 20230417
  Serious: No
  Sender: FDA-Public Use
  Company Number: US-SA-SAC20230120001196

PATIENT
  Age: 80 Year
  Sex: Male
  Weight: 91.625 kg

DRUGS (16)
  1. DUPIXENT [Suspect]
     Active Substance: DUPILUMAB
     Indication: Dermatitis atopic
     Dosage: 300 MG, QOW
     Route: 058
     Dates: start: 202209
  2. VOLTAREN ARTHRITIS PAIN [Concomitant]
     Active Substance: DICLOFENAC SODIUM
     Dosage: 325MG
  3. DESOXIMETASONE [Concomitant]
     Active Substance: DESOXIMETASONE
  4. LUMIGAN [Concomitant]
     Active Substance: BIMATOPROST
  5. CLONIDINE [Concomitant]
     Active Substance: CLONIDINE
  6. LIPITOR [Concomitant]
     Active Substance: ATORVASTATIN CALCIUM
  7. GUANFACINE HYDROCHLORIDE [Concomitant]
     Active Substance: GUANFACINE HYDROCHLORIDE
  8. ALLOPURINOL [Concomitant]
     Active Substance: ALLOPURINOL
  9. SODIUM BICARBONATE [Concomitant]
     Active Substance: SODIUM BICARBONATE
  10. ZEMPLAR [Concomitant]
     Active Substance: PARICALCITOL
  11. KERENDIA [Concomitant]
     Active Substance: FINERENONE
  12. ASPIRIN [Concomitant]
     Active Substance: ASPIRIN
  13. FERROUS SULFATE [Concomitant]
     Active Substance: FERROUS SULFATE
  14. NORVASC [Concomitant]
     Active Substance: AMLODIPINE BESYLATE
  15. JARDIANCE [Concomitant]
     Active Substance: EMPAGLIFLOZIN
  16. MAGNESIUM [Concomitant]
     Active Substance: MAGNESIUM

REACTIONS (2)
  - Bronchitis [Not Recovered/Not Resolved]
  - COVID-19 [Recovered/Resolved]

NARRATIVE: CASE EVENT DATE: 20230106
